FAERS Safety Report 24351079 (Version 1)
Quarter: 2024Q3

REPORT INFORMATION
  Report Type: Spontaneous
  Country: US (occurrence: None)
  Receive Date: 20240920
  Receipt Date: 20240920
  Transmission Date: 20241017
  Serious: Yes (Other)
  Sender: Public
  Company Number: None

PATIENT
  Age: 52 Year
  Sex: Male
  Weight: 90 kg

DRUGS (7)
  1. CLOPIDOGREL [Suspect]
     Active Substance: CLOPIDOGREL BISULFATE
     Indication: Stent placement
     Dosage: 1 TABLET DAILY ORAL
     Route: 048
  2. BRILINTA [Suspect]
     Active Substance: TICAGRELOR
  3. OMEPRAZOLE [Suspect]
     Active Substance: OMEPRAZOLE
  4. CLOPIDOGREL [Concomitant]
     Active Substance: CLOPIDOGREL BISULFATE
  5. ROSUVASTATIN [Concomitant]
     Active Substance: ROSUVASTATIN\ROSUVASTATIN CALCIUM
  6. LOW DOSE ASPIRIN [Concomitant]
     Active Substance: ASPIRIN
  7. VITAMINS [Concomitant]
     Active Substance: VITAMINS

REACTIONS (4)
  - Dyspnoea [None]
  - Chest pain [None]
  - Palpitations [None]
  - Drug interaction [None]

NARRATIVE: CASE EVENT DATE: 20240819
